FAERS Safety Report 12283879 (Version 2)
Quarter: 2016Q2

REPORT INFORMATION
  Report Type: Report from Study
  Country: US (occurrence: US)
  Receive Date: 20160419
  Receipt Date: 20160510
  Transmission Date: 20160815
  Serious: Yes (Hospitalization)
  Sender: FDA-Public Use
  Company Number: US-ABBVIE-16P-163-1608278-00

PATIENT
  Age: 72 Year
  Sex: Male
  Weight: 94.12 kg

DRUGS (2)
  1. LUPRON DEPOT [Suspect]
     Active Substance: LEUPROLIDE ACETATE
     Indication: PROSTATE CANCER
     Dosage: UNK
     Route: 030
     Dates: start: 20140402, end: 20160202
  2. TAK-700 [Concomitant]
     Active Substance: ORTERONEL
     Indication: PROSTATE CANCER
     Dosage: UNK UNK, BID
     Route: 048
     Dates: start: 20140402, end: 20160322

REACTIONS (1)
  - Coronary artery bypass [Recovering/Resolving]

NARRATIVE: CASE EVENT DATE: 20160329
